FAERS Safety Report 24569798 (Version 1)
Quarter: 2024Q4

REPORT INFORMATION
  Report Type: Spontaneous
  Country: CN (occurrence: CN)
  Receive Date: 20241031
  Receipt Date: 20241031
  Transmission Date: 20250115
  Serious: Yes (Other)
  Sender: MERCK
  Company Number: CN-009507513-2410CHN012824

PATIENT
  Age: 50 Year
  Sex: Male
  Weight: 70 kg

DRUGS (4)
  1. KEYTRUDA [Suspect]
     Active Substance: PEMBROLIZUMAB
     Indication: Tongue neoplasm malignant stage unspecified
     Dosage: 200 MG, ONCE A WEEK
     Route: 041
     Dates: start: 20240626, end: 20240816
  2. CETUXIMAB [Concomitant]
     Active Substance: CETUXIMAB
     Indication: Tongue neoplasm malignant stage unspecified
     Dosage: 0.46 G, ONCE A WEEK
     Route: 041
     Dates: start: 20240626, end: 20240823
  3. SODIUM CHLORIDE [Concomitant]
     Active Substance: SODIUM CHLORIDE
     Dosage: 100ML, ONCE A WEEK
     Route: 041
     Dates: start: 20240626, end: 20240816
  4. SODIUM CHLORIDE [Concomitant]
     Active Substance: SODIUM CHLORIDE
     Dosage: 250ML, ONCE A WEEK
     Route: 041
     Dates: start: 20240626, end: 20240823

REACTIONS (2)
  - Hepatic function abnormal [Recovering/Resolving]
  - Inappropriate schedule of product administration [Unknown]

NARRATIVE: CASE EVENT DATE: 20240823
